FAERS Safety Report 6958305-6 (Version None)
Quarter: 2010Q3

REPORT INFORMATION
  Report Type: 
  Country: None (occurrence: None)
  Receive Date: 20100831
  Receipt Date: 20100824
  Transmission Date: 20110219
  Serious: Yes (Hospitalization)
  Sender: FDA-Public Use
  Company Number: A0878205A

PATIENT
  Sex: Female

DRUGS (11)
  1. TOPOTECAN [Suspect]
     Dosage: .75MGM2 CYCLIC
     Route: 042
     Dates: start: 20100623, end: 20100728
  2. CISPLATIN [Suspect]
     Dosage: 50MGM2 CYCLIC
     Route: 042
     Dates: start: 20100623, end: 20100728
  3. BEVACIZUMAB [Suspect]
     Dosage: 15MGM2 CYCLIC
     Route: 042
     Dates: start: 20100623, end: 20100728
  4. HYDROCHLOROTHIAZIDE [Concomitant]
  5. PAXIL [Concomitant]
  6. RELAFEN [Concomitant]
  7. ZOCOR [Concomitant]
  8. VERAPAMIL [Concomitant]
  9. ASPIRIN [Concomitant]
  10. NEXIUM [Concomitant]
  11. TOPROL-XL [Concomitant]
     Dosage: 12.5MG PER DAY

REACTIONS (20)
  - ABDOMINAL PAIN [None]
  - ANXIETY [None]
  - ATRIAL FIBRILLATION [None]
  - BACK PAIN [None]
  - CONSTIPATION [None]
  - DECREASED APPETITE [None]
  - DIARRHOEA [None]
  - DISEASE PROGRESSION [None]
  - DYSGEUSIA [None]
  - FAILURE TO THRIVE [None]
  - FATIGUE [None]
  - HOT FLUSH [None]
  - HYDRONEPHROSIS [None]
  - HYPOGLYCAEMIA [None]
  - INSOMNIA [None]
  - NAUSEA [None]
  - URINE OUTPUT DECREASED [None]
  - VAGINAL DISCHARGE [None]
  - VOMITING [None]
  - VULVOVAGINAL PAIN [None]
